FAERS Safety Report 23286612 (Version 1)
Quarter: 2023Q4

REPORT INFORMATION
  Report Type: Spontaneous
  Country: US (occurrence: US)
  Receive Date: 20231212
  Receipt Date: 20231212
  Transmission Date: 20240110
  Serious: Yes (Hospitalization)
  Sender: FDA-Public Use
  Company Number: US-CHEPLA-2023015671

PATIENT
  Sex: Female

DRUGS (2)
  1. CAPECITABINE [Suspect]
     Active Substance: CAPECITABINE
     Indication: Breast cancer female
     Route: 048
  2. TUCATINIB [Suspect]
     Active Substance: TUCATINIB
     Route: 048

REACTIONS (4)
  - Thyroid disorder [Unknown]
  - Liver disorder [Unknown]
  - Pain [Unknown]
  - Ill-defined disorder [Unknown]
